FAERS Safety Report 14238947 (Version 1)
Quarter: 2017Q4

REPORT INFORMATION
  Report Type: Spontaneous
  Country: US (occurrence: US)
  Receive Date: 20171130
  Receipt Date: 20171130
  Transmission Date: 20180321
  Serious: No
  Sender: FDA-Public Use
  Company Number: US-SA-2017SA198624

PATIENT
  Age: 65 Year
  Sex: Female

DRUGS (3)
  1. SOLIQUA 100/33 [Suspect]
     Active Substance: INSULIN GLARGINE\LIXISENATIDE
     Dosage: DOSE:30 UNIT(S)
     Route: 065
  2. SOLIQUA 100/33 [Suspect]
     Active Substance: INSULIN GLARGINE\LIXISENATIDE
     Dosage: DOSE:15 UNIT(S)
     Route: 065
     Dates: start: 201709
  3. SOLOSTAR [Suspect]
     Active Substance: DEVICE
     Dates: start: 201709

REACTIONS (2)
  - Device issue [Unknown]
  - Blood glucose increased [Unknown]

NARRATIVE: CASE EVENT DATE: 2017
